FAERS Safety Report 5327758-1 (Version None)
Quarter: 2007Q2

REPORT INFORMATION
  Report Type: 
  Country: None (occurrence: None)
  Receive Date: 20070517
  Receipt Date: 20070504
  Transmission Date: 20071010
  Serious: Yes (Hospitalization, Disabling, Other)
  Sender: FDA-Public Use
  Company Number: GB-ASTRAZENECA-2007GB00974

PATIENT
  Age: 27099 Day
  Sex: Female

DRUGS (5)
  1. NOLVADEX [Suspect]
     Indication: BREAST CANCER
     Route: 048
     Dates: start: 19980313, end: 20030409
  2. FOSAMAX [Concomitant]
     Indication: OSTEOPOROSIS
     Route: 048
     Dates: start: 20020101, end: 20060701
  3. PANTOPRAZOLE SODIUM [Concomitant]
     Indication: GASTRIC ULCER
     Dates: start: 20001101
  4. LAXATIVES [Concomitant]
     Indication: CONSTIPATION
     Dates: start: 20010801
  5. BECLOMETHASONE INHALER [Concomitant]
     Indication: ASTHMA
     Route: 055

REACTIONS (1)
  - VERTEBRAL WEDGING [None]
